FAERS Safety Report 4885893-6 (Version None)
Quarter: 2006Q1

REPORT INFORMATION
  Report Type: 
  Country: None (occurrence: None)
  Receive Date: 20060117
  Receipt Date: 20060110
  Transmission Date: 20060701
  Serious: Yes (Other)
  Sender: FDA-Public Use
  Company Number: 2004-12-0953

PATIENT
  Age: 73 Year
  Sex: Female

DRUGS (2)
  1. BETAMETHASONE DIPROPIONATE [Suspect]
     Indication: PAROPHTHALMIA
     Dosage: 6 MG QD OPHTHALMIC
     Route: 047
  2. PREDONINE ORAL [Suspect]
     Indication: INFLAMMATION
     Dosage: 10 MG ORAL
     Route: 048

REACTIONS (4)
  - CORNEAL EPITHELIUM DISORDER [None]
  - ENOPHTHALMOS [None]
  - EYE MOVEMENT DISORDER [None]
  - EYELID FUNCTION DISORDER [None]
